FAERS Safety Report 6206891-6 (Version None)
Quarter: 2009Q2

REPORT INFORMATION
  Report Type: 
  Country: None (occurrence: None)
  Receive Date: 20090521
  Receipt Date: 20080527
  Transmission Date: 20091009
  Serious: Yes (Hospitalization)
  Sender: FDA-Public Use
  Company Number: 2008S1007034

PATIENT
  Age: 50 Year
  Sex: Female
  Weight: 77 kg

DRUGS (15)
  1. LISINOPRIL [Suspect]
     Indication: HYPERTENSION
     Dosage: 20 MG;DAILY;ORAL
     Route: 048
     Dates: start: 19970225
  2. CLONIDINE HCL [Suspect]
     Dosage: 0.1 MG;TWICE A DAY;ORAL
     Route: 048
     Dates: start: 20070809
  3. HYDROCODONE BITARTRATE [Concomitant]
  4. ASCORBIC ACID [Concomitant]
  5. VITAMIN E [Concomitant]
  6. MULTIVIT [Concomitant]
  7. BEVACIZUMAB [Suspect]
     Indication: COLON CANCER
     Dosage: 372.5 MG;INTRAVENOUS
     Route: 042
     Dates: start: 20070815
  8. OXALIPLATIN [Suspect]
     Indication: COLON CANCER
     Dosage: 154.7 MG; INTRAVENOUS 118.3 MG; INTRAVENOUS
     Route: 042
     Dates: start: 20070815, end: 20070815
  9. OXALIPLATIN [Suspect]
     Indication: COLON CANCER
     Dosage: 154.7 MG; INTRAVENOUS 118.3 MG; INTRAVENOUS
     Route: 042
     Dates: start: 20070914
  10. LEUCOVORIN CALCIUM [Suspect]
     Indication: COLON CANCER
     Dosage: 728 MG; INTRAVENOUS
     Route: 042
     Dates: start: 20070815
  11. 5-FU /00098801/ [Suspect]
     Indication: COLON CANCER
     Dosage: 400 MG/M**2; INTRAVENOUS 320 MG/M**2; INTRAVENOUS 4368 MG; INTRAVENOUS 3494.4 MG; INTRAVENOUS
     Route: 042
     Dates: start: 20070815, end: 20070815
  12. 5-FU /00098801/ [Suspect]
     Indication: COLON CANCER
     Dosage: 400 MG/M**2; INTRAVENOUS 320 MG/M**2; INTRAVENOUS 4368 MG; INTRAVENOUS 3494.4 MG; INTRAVENOUS
     Route: 042
     Dates: start: 20070815, end: 20070815
  13. 5-FU /00098801/ [Suspect]
     Indication: COLON CANCER
     Dosage: 400 MG/M**2; INTRAVENOUS 320 MG/M**2; INTRAVENOUS 4368 MG; INTRAVENOUS 3494.4 MG; INTRAVENOUS
     Route: 042
     Dates: start: 20070914
  14. 5-FU /00098801/ [Suspect]
     Indication: COLON CANCER
     Dosage: 400 MG/M**2; INTRAVENOUS 320 MG/M**2; INTRAVENOUS 4368 MG; INTRAVENOUS 3494.4 MG; INTRAVENOUS
     Route: 042
     Dates: start: 20070914
  15. ATENOLOL [Suspect]
     Indication: HYPERTENSION
     Dosage: 50 MG;DAILY;ORAL
     Route: 048
     Dates: start: 20070808

REACTIONS (2)
  - FLUSHING [None]
  - HYPOTENSION [None]
